FAERS Safety Report 6240653-9 (Version None)
Quarter: 2009Q2

REPORT INFORMATION
  Report Type: 
  Country: None (occurrence: None)
  Receive Date: 20090623
  Receipt Date: 20090114
  Transmission Date: 20091009
  Serious: No
  Sender: FDA-Public Use
  Company Number: US-ASTRAZENECA-2008UW26776

PATIENT
  Age: 81 Year
  Sex: Female
  Weight: 55.8 kg

DRUGS (2)
  1. PULMICORT FLEXHALER [Suspect]
     Indication: ASTHMA
     Dosage: 180 MCG, 1 PUFF DAILY
     Route: 055
     Dates: start: 20081101
  2. PULMICORT FLEXHALER [Suspect]
     Indication: GASTROOESOPHAGEAL REFLUX DISEASE
     Dosage: 180 MCG, 1 PUFF DAILY
     Route: 055
     Dates: start: 20081101

REACTIONS (8)
  - APHONIA [None]
  - COUGH [None]
  - DYSGRAPHIA [None]
  - HEADACHE [None]
  - INCORRECT DOSE ADMINISTERED [None]
  - NERVOUSNESS [None]
  - OROPHARYNGEAL PAIN [None]
  - TREMOR [None]
